FAERS Safety Report 7494923-7 (Version None)
Quarter: 2011Q2

REPORT INFORMATION
  Report Type: 
  Country: None (occurrence: None)
  Receive Date: 20110520
  Receipt Date: 20110505
  Transmission Date: 20111010
  Serious: Yes (Other)
  Sender: FDA-Public Use
  Company Number: US-UCBSA-033094

PATIENT
  Sex: Male
  Weight: 11.8 kg

DRUGS (6)
  1. KEPPRA [Suspect]
     Route: 064
  2. KEPPRA [Suspect]
     Route: 063
  3. PRENATAL VITAMINS [Concomitant]
     Route: 063
  4. FOLIC ACID [Concomitant]
     Route: 063
  5. FOLIC ACID [Concomitant]
     Route: 064
     Dates: start: 20080801
  6. PRENATAL VITAMINS [Concomitant]
     Route: 064
     Dates: start: 20080801

REACTIONS (3)
  - SPEECH DISORDER [None]
  - DRUG EXPOSURE DURING PREGNANCY [None]
  - DRUG EXPOSURE VIA BREAST MILK [None]
